FAERS Safety Report 7400218-X (Version None)
Quarter: 2011Q2

REPORT INFORMATION
  Report Type: 
  Country: None (occurrence: None)
  Receive Date: 20110407
  Receipt Date: 20110325
  Transmission Date: 20111010
  Serious: Yes (Other)
  Sender: FDA-Public Use
  Company Number: US-ACTELION-A-US2010-39828

PATIENT

DRUGS (16)
  1. TRACLEER [Suspect]
     Indication: PULMONARY ARTERIAL HYPERTENSION
     Dosage: 62.5 MG, BID
     Route: 048
     Dates: start: 20100809, end: 20101216
  2. CLINDAMYCIN [Concomitant]
  3. MUCOMYST [Concomitant]
  4. WARFARIN SODIUM [Concomitant]
  5. ACTOS [Concomitant]
  6. TRACLEER [Suspect]
     Dosage: 62.5 MG, QD
     Route: 048
     Dates: start: 20110107
  7. BENZONATATE [Concomitant]
  8. LASIX [Concomitant]
  9. CALCIUM D [Concomitant]
  10. FUROSEMIDE [Concomitant]
  11. AMLODIPINE [Concomitant]
  12. POTASSIUM CHLORIDE [Concomitant]
  13. ASPIRIN [Concomitant]
  14. ACETAMINOPHEN [Concomitant]
  15. CENTRUM SILVER [Concomitant]
  16. GLYBURIDE [Concomitant]

REACTIONS (13)
  - LOCAL SWELLING [None]
  - ASTHENIA [None]
  - GAIT DISTURBANCE [None]
  - THYROID NEOPLASM [None]
  - JOINT SWELLING [None]
  - ORAL PAIN [None]
  - SALIVARY DUCT OBSTRUCTION [None]
  - OROPHARYNGEAL DISCOMFORT [None]
  - CONDITION AGGRAVATED [None]
  - VISUAL IMPAIRMENT [None]
  - PAIN [None]
  - GOITRE [None]
  - FATIGUE [None]
